FAERS Safety Report 11183678 (Version 1)
Quarter: 2015Q2

REPORT INFORMATION
  Report Type: Spontaneous
  Country: US (occurrence: None)
  Receive Date: 20150611
  Receipt Date: 20150611
  Transmission Date: 20150821
  Serious: Yes (Death, Hospitalization)
  Sender: FDA-Public Use
  Company Number: None

PATIENT
  Age: 63 Year
  Sex: Male
  Weight: 76.2 kg

DRUGS (1)
  1. RIVAROXABAN [Suspect]
     Active Substance: RIVAROXABAN
     Indication: PULMONARY EMBOLISM
     Route: 048
     Dates: start: 20150301, end: 20150514

REACTIONS (5)
  - Pneumonia aspiration [None]
  - Chronic obstructive pulmonary disease [None]
  - Bacteraemia [None]
  - Sepsis [None]
  - Haemorrhage intracranial [None]

NARRATIVE: CASE EVENT DATE: 20150514
